FAERS Safety Report 5624289-6 (Version None)
Quarter: 2008Q1

REPORT INFORMATION
  Report Type: 
  Country: None (occurrence: None)
  Receive Date: 20080208
  Receipt Date: 20080208
  Transmission Date: 20080703
  Serious: Yes (Hospitalization)
  Sender: FDA-Public Use
  Company Number: None

PATIENT
  Sex: Female
  Weight: 50.5 kg

DRUGS (2)
  1. ERLOTINIB - 150MG- GENETECH [Suspect]
     Indication: NON-SMALL CELL LUNG CANCER
     Dosage: 150MG ORALLY QD
     Route: 048
     Dates: start: 20071106, end: 20071218
  2. DASATINIB - 50MG -BRISTOL-MYERS SQUIBB [Suspect]
     Indication: NON-SMALL CELL LUNG CANCER
     Dosage: 70MG ORALLY BID
     Dates: start: 20071114, end: 20071218

REACTIONS (2)
  - DISEASE PROGRESSION [None]
  - MALIGNANT PLEURAL EFFUSION [None]
